FAERS Safety Report 4488820-9 (Version None)
Quarter: 2004Q4

REPORT INFORMATION
  Report Type: 
  Country: None (occurrence: None)
  Receive Date: 20041029
  Receipt Date: 20030605
  Transmission Date: 20050328
  Serious: Yes (Disabling, Other)
  Sender: FDA-Public Use
  Company Number: US-MERCK-0306USA00790

PATIENT
  Age: 53 Year
  Sex: Female
  Weight: 161 kg

DRUGS (5)
  1. VIOXX [Suspect]
     Route: 048
     Dates: start: 20000801, end: 20001227
  2. VIOXX [Suspect]
     Route: 048
     Dates: start: 20001228
  3. SOMA [Concomitant]
     Route: 048
  4. PROMETHAZINE [Concomitant]
     Route: 065
  5. HYOSCYAMINE [Concomitant]
     Route: 065

REACTIONS (13)
  - ADVERSE EVENT [None]
  - BACK INJURY [None]
  - BLOOD PRESSURE INCREASED [None]
  - BRONCHITIS ACUTE [None]
  - CONVULSION [None]
  - DRUG INEFFECTIVE [None]
  - EAR PAIN [None]
  - FALL [None]
  - HEADACHE [None]
  - JOINT INJURY [None]
  - LOCALISED OSTEOARTHRITIS [None]
  - MALAISE [None]
  - MERALGIA PARAESTHETICA [None]
